FAERS Safety Report 5577423-0 (Version None)
Quarter: 2007Q4

REPORT INFORMATION
  Report Type: 
  Country: None (occurrence: None)
  Receive Date: 20071130
  Receipt Date: 20070925
  Transmission Date: 20080405
  Serious: No
  Sender: FDA-Public Use
  Company Number: US200709006757

PATIENT
  Age: 60 Year
  Sex: Male

DRUGS (1)
  1. BYETTA [Suspect]
     Dosage: 5 UG, SUBCUTANEOUS ; 10 UG, SUBCUTANEOUS
     Route: 058

REACTIONS (5)
  - DECREASED APPETITE [None]
  - DRUG EFFECT DECREASED [None]
  - FOOD AVERSION [None]
  - MALAISE [None]
  - NEUROPATHY PERIPHERAL [None]
